FAERS Safety Report 19952826 (Version 1)
Quarter: 2021Q4

REPORT INFORMATION
  Report Type: Spontaneous
  Country: US (occurrence: US)
  Receive Date: 20211013
  Receipt Date: 20211013
  Transmission Date: 20220303
  Serious: No
  Sender: FDA-Public Use
  Company Number: US-ORGANON-O2110USA000177

PATIENT
  Sex: Male

DRUGS (2)
  1. PROSCAR [Suspect]
     Active Substance: FINASTERIDE
     Dosage: UNK
     Route: 048
  2. MORNIFLUMATE [Suspect]
     Active Substance: MORNIFLUMATE

REACTIONS (2)
  - Dizziness [Unknown]
  - Headache [Unknown]
